FAERS Safety Report 6051795-5 (Version None)
Quarter: 2009Q1

REPORT INFORMATION
  Report Type: 
  Country: None (occurrence: None)
  Receive Date: 20090126
  Receipt Date: 20090119
  Transmission Date: 20090719
  Serious: Yes (Hospitalization)
  Sender: FDA-Public Use
  Company Number: PHHY2009US02014

PATIENT
  Sex: Male

DRUGS (2)
  1. NEORAL [Suspect]
     Dosage: 150 MG, BID
     Route: 048
     Dates: start: 20070727
  2. MYFORTIC [Suspect]
     Dosage: 540 MG, BID
     Route: 048
     Dates: start: 20070727

REACTIONS (1)
  - SURGERY [None]
